FAERS Safety Report 20738864 (Version 1)
Quarter: 2022Q2

REPORT INFORMATION
  Report Type: Spontaneous
  Country: NL (occurrence: NL)
  Receive Date: 20220422
  Receipt Date: 20220422
  Transmission Date: 20220720
  Serious: Yes (Congenital Anomaly, Other)
  Sender: FDA-Public Use
  Company Number: NL-ROCHE-2929112

PATIENT
  Sex: Male

DRUGS (4)
  1. CLONAZEPAM [Suspect]
     Active Substance: CLONAZEPAM
     Indication: Product used for unknown indication
     Dosage: UNK
     Route: 065
     Dates: end: 202109
  2. CARBIDOPA\LEVODOPA [Suspect]
     Active Substance: CARBIDOPA\LEVODOPA
     Indication: Parkinson^s disease
     Dosage: UNK, INTRACATHETER MD: 17.7ML; CD: 4.5ML/H; ED: 4.0ML
     Route: 050
     Dates: start: 2021, end: 2021
  3. CARBIDOPA\LEVODOPA [Suspect]
     Active Substance: CARBIDOPA\LEVODOPA
     Indication: Parkinson^s disease
     Dosage: UNK, CD: 4.3ML/H (INTRACATHETER )
     Route: 050
     Dates: start: 2021
  4. CARBIDOPA\LEVODOPA [Suspect]
     Active Substance: CARBIDOPA\LEVODOPA
     Indication: Parkinson^s disease
     Dosage: UNK, INTRACATHETER  MD: 17.7ML; CD: 4.8ML/H; ED: 4.0ML
     Route: 050
     Dates: start: 20210301, end: 2021

REACTIONS (22)
  - Hallucination [Unknown]
  - Nausea [Not Recovered/Not Resolved]
  - Stoma site infection [Recovering/Resolving]
  - Confusional state [Unknown]
  - Stoma site hypergranulation [Unknown]
  - Stoma site irritation [Recovering/Resolving]
  - Dyskinesia [Not Recovered/Not Resolved]
  - Hypersomnia [Not Recovered/Not Resolved]
  - Abnormal faeces [Not Recovered/Not Resolved]
  - Somnolence [Recovering/Resolving]
  - Stoma site pain [Recovered/Resolved]
  - Drug ineffective [Unknown]
  - Speech disorder [Not Recovered/Not Resolved]
  - Restlessness [Unknown]
  - Tardive dyskinesia [Not Recovered/Not Resolved]
  - Choking [Not Recovered/Not Resolved]
  - Vomiting [Not Recovered/Not Resolved]
  - Memory impairment [Not Recovered/Not Resolved]
  - Hiccups [Not Recovered/Not Resolved]
  - Ileus [Not Recovered/Not Resolved]
  - Flatulence [Not Recovered/Not Resolved]
  - Intestinal transit time decreased [Not Recovered/Not Resolved]

NARRATIVE: CASE EVENT DATE: 20210101
